FAERS Safety Report 17296634 (Version 1)
Quarter: 2020Q1

REPORT INFORMATION
  Report Type: Spontaneous
  Country: CA (occurrence: CA)
  Receive Date: 20200121
  Receipt Date: 20200121
  Transmission Date: 20200409
  Serious: Yes (Life-Threatening)
  Sender: FDA-Public Use
  Company Number: CA-JNJFOC-20200116984

PATIENT
  Age: 66 Year
  Sex: Female
  Weight: 54 kg

DRUGS (11)
  1. EPIVAL                             /00017001/ [Interacting]
     Active Substance: DIAZEPAM
     Route: 065
  2. VALPROATE SEMISODIUM [Interacting]
     Active Substance: DIVALPROEX SODIUM
     Route: 065
  3. RISPERDAL [Suspect]
     Active Substance: RISPERIDONE
     Indication: DEPRESSION
     Route: 048
  4. RISPERDAL [Interacting]
     Active Substance: RISPERIDONE
     Indication: DEPRESSION
     Route: 065
  5. SODIUM VALPROATE [Interacting]
     Active Substance: VALPROATE SODIUM
     Indication: DEPRESSION
     Route: 065
  6. CITALOPRAM HYDROCHLORIDE [Interacting]
     Active Substance: CITALOPRAM HYDROCHLORIDE
     Indication: PRODUCT USED FOR UNKNOWN INDICATION
     Route: 065
  7. EPIVAL                             /00017001/ [Interacting]
     Active Substance: DIAZEPAM
     Indication: DEPRESSION
     Route: 065
  8. ABILIFY [Interacting]
     Active Substance: ARIPIPRAZOLE
     Indication: DEPRESSION
     Route: 065
  9. EPIVAL                             /00017001/ [Interacting]
     Active Substance: DIAZEPAM
     Route: 065
  10. SODIUM VALPROATE [Interacting]
     Active Substance: VALPROATE SODIUM
     Route: 065
  11. VALPROATE SEMISODIUM [Interacting]
     Active Substance: DIVALPROEX SODIUM
     Indication: DEPRESSION
     Route: 065

REACTIONS (4)
  - Weight increased [Unknown]
  - Alopecia [Unknown]
  - Drug interaction [Unknown]
  - Hypersomnia [Unknown]
